FAERS Safety Report 7929956-7 (Version None)
Quarter: 2011Q4

REPORT INFORMATION
  Report Type: 
  Country: None (occurrence: None)
  Receive Date: 20111117
  Receipt Date: 20111102
  Transmission Date: 20120403
  Serious: Yes (Other)
  Sender: FDA-Public Use
  Company Number: 2011P1010100

PATIENT
  Sex: Female

DRUGS (1)
  1. HEPARIN SODIUM [Suspect]
     Dates: start: 20070101, end: 20070101

REACTIONS (13)
  - FEAR OF DISEASE [None]
  - PRODUCT CONTAMINATION [None]
  - NAUSEA [None]
  - VOMITING [None]
  - HYPERHIDROSIS [None]
  - MENTAL DISORDER [None]
  - BLOOD PRESSURE DECREASED [None]
  - ANXIETY [None]
  - INJURY [None]
  - PAIN [None]
  - ANHEDONIA [None]
  - DYSPNOEA [None]
  - HYPERSENSITIVITY [None]
